FAERS Safety Report 9379876 (Version 1)
Quarter: 2013Q2

REPORT INFORMATION
  Report Type: Spontaneous
  Country: US (occurrence: None)
  Receive Date: 20130627
  Receipt Date: 20130627
  Transmission Date: 20140414
  Serious: Yes (Hospitalization, Other)
  Sender: FDA-Public Use
  Company Number: IPC201306-000247

PATIENT
  Age: 62 Year
  Sex: Female
  Weight: 90.71 kg

DRUGS (2)
  1. HYDROXYCHLOROQUINE SULFATE [Suspect]
     Indication: CREST SYNDROME
     Route: 048
     Dates: start: 20130417
  2. METHOTREXATE [Suspect]
     Dosage: 6 TABS WEEKLY
     Route: 048

REACTIONS (5)
  - Pustular psoriasis [None]
  - Vomiting [None]
  - Dysstasia [None]
  - Eczema [None]
  - Scar [None]
